FAERS Safety Report 10017729 (Version 1)
Quarter: 2014Q1

REPORT INFORMATION
  Report Type: Spontaneous
  Country: US (occurrence: US)
  Receive Date: 20140318
  Receipt Date: 20140318
  Transmission Date: 20141002
  Serious: No
  Sender: FDA-Public Use
  Company Number: US-BRISTOL-MYERS SQUIBB COMPANY-18708354

PATIENT
  Age: 83 Year
  Sex: Female

DRUGS (1)
  1. ERBITUX [Suspect]
     Dosage: 6 TIMES.

REACTIONS (3)
  - Lip haemorrhage [Unknown]
  - Dry skin [Unknown]
  - Erythema [Unknown]
